FAERS Safety Report 17310087 (Version 1)
Quarter: 2020Q1

REPORT INFORMATION
  Report Type: Spontaneous
  Country: US (occurrence: US)
  Receive Date: 20200123
  Receipt Date: 20200123
  Transmission Date: 20200409
  Serious: No
  Sender: FDA-Public Use
  Company Number: US-ROCHE-2276216

PATIENT
  Sex: Female

DRUGS (2)
  1. RITUXAN [Suspect]
     Active Substance: RITUXIMAB
     Dosage: ONGOING; NO
     Route: 042
     Dates: start: 2010, end: 2011
  2. RITUXAN [Suspect]
     Active Substance: RITUXIMAB
     Indication: MYASTHENIA GRAVIS
     Dosage: FIRST DOSE ON 15/JAN/2019, SECOND DOSE ON 23/JAN/2019, THIRD DOSE ON 30/JAN/2019 AND FORTH DOSE ON 0
     Route: 042
     Dates: start: 20190114, end: 20190206

REACTIONS (3)
  - Intentional product use issue [Unknown]
  - Off label use [Unknown]
  - Pregnancy [Unknown]

NARRATIVE: CASE EVENT DATE: 2019
